FAERS Safety Report 9955011 (Version 2)
Quarter: 2014Q1

REPORT INFORMATION
  Report Type: Spontaneous
  Country: PR (occurrence: PR)
  Receive Date: 20140304
  Receipt Date: 20140304
  Transmission Date: 20141002
  Serious: No
  Sender: FDA-Public Use
  Company Number: PR-ABBVIE-12P-131-1027442-00

PATIENT
  Age: 36 Year
  Sex: Female
  Weight: 74.91 kg

DRUGS (4)
  1. HUMIRA [Suspect]
     Indication: RHEUMATOID ARTHRITIS
     Route: 058
     Dates: start: 201212
  2. SINGULAIR [Concomitant]
     Indication: ASTHMA
     Route: 048
  3. ALBUTEROL SULFATE [Concomitant]
     Indication: ASTHMA
     Route: 048
  4. PLAQUENIL [Concomitant]
     Indication: RHEUMATOID ARTHRITIS
     Route: 048

REACTIONS (2)
  - Nasopharyngitis [Recovered/Resolved]
  - Rash [Recovered/Resolved]
